FAERS Safety Report 8790322 (Version 1)
Quarter: 2012Q4

REPORT INFORMATION
  Report Type: 
  Country: CH (occurrence: CH)
  Receive Date: 20120917
  Receipt Date: 20120917
  Transmission Date: 20130627
  Serious: Yes (Death)
  Sender: FDA-Public Use
  Company Number: CH-UCBSA-063393

PATIENT
  Age: 80 Year
  Sex: Male

DRUGS (4)
  1. LACOSAMIDE [Suspect]
     Indication: STATUS EPILEPTICUS
  2. LEVETIRACETAM [Suspect]
     Indication: STATUS EPILEPTICUS
  3. LORAZEPAM [Suspect]
     Indication: STATUS EPILEPTICUS
  4. TOPIRAMATE [Suspect]
     Indication: STATUS EPILEPTICUS
     Dosage: 400MG-799 MG PER DAY

REACTIONS (1)
  - Death [Fatal]
